FAERS Safety Report 12119039 (Version 1)
Quarter: 2016Q1

REPORT INFORMATION
  Report Type: Spontaneous
  Country: US (occurrence: None)
  Receive Date: 20160225
  Receipt Date: 20160225
  Transmission Date: 20160526
  Serious: Yes (Disabling)
  Sender: FDA-Public Use
  Company Number: None

PATIENT
  Age: 59 Year
  Sex: Female
  Weight: 54.43 kg

DRUGS (5)
  1. NATURE-THROID [Concomitant]
     Active Substance: THYROID, PORCINE
  2. LEVOFLOXACIN  500 MG [Suspect]
     Active Substance: LEVOFLOXACIN
     Indication: SINUSITIS
     Dosage: 1 ONCE DAILY, TAKEN BY MOUTH
     Route: 048
     Dates: start: 20150703, end: 20150716
  3. OXYCODONE [Concomitant]
     Active Substance: OXYCODONE
  4. WOMEN^S DAILY VITAMIN [Concomitant]
  5. VITAMIN D3 [Concomitant]
     Active Substance: CHOLECALCIFEROL

REACTIONS (2)
  - Asthenia [None]
  - Tendonitis [None]
